FAERS Safety Report 4355019-6 (Version None)
Quarter: 2004Q2

REPORT INFORMATION
  Report Type: 
  Country: None (occurrence: None)
  Receive Date: 20040504
  Receipt Date: 20040422
  Transmission Date: 20050107
  Serious: Yes (Hospitalization)
  Sender: FDA-Public Use
  Company Number: 03P-129-0241943-00

PATIENT
  Age: 69 Year
  Sex: Male
  Weight: 96.1 kg

DRUGS (7)
  1. SIBUTRAMINE (SIBUTRAMINE) (SIBUTRAMINE) [Suspect]
     Indication: OBESITY
     Dosage: 10 MG, 1 IN 1 D, PER ORAL
     Route: 048
     Dates: start: 20031008
  2. ISOSORBIDE MONONITRATE [Concomitant]
  3. SIMVASTATIN [Concomitant]
  4. ASPIRIN [Concomitant]
  5. INDAPAMIDE [Concomitant]
  6. METOPROLOL TARTRATE [Concomitant]
  7. BENAZEPRIL HCL [Concomitant]

REACTIONS (15)
  - ARTERIOSCLEROSIS [None]
  - ASTHENIA [None]
  - BLOOD CHOLESTEROL INCREASED [None]
  - BLOOD PRESSURE INCREASED [None]
  - BLOOD TRIGLYCERIDES INCREASED [None]
  - CARDIOMYOPATHY [None]
  - CATARACT [None]
  - CEREBRAL INFARCTION [None]
  - ELECTROLYTE IMBALANCE [None]
  - INFARCTION [None]
  - MYOCARDIAL ISCHAEMIA [None]
  - OPTIC ATROPHY [None]
  - PAPILLITIS [None]
  - RENAL FAILURE [None]
  - VISUAL ACUITY REDUCED [None]
